FAERS Safety Report 8055897-3 (Version None)
Quarter: 2012Q1

REPORT INFORMATION
  Report Type: 
  Country: None (occurrence: None)
  Receive Date: 20120119
  Receipt Date: 20120118
  Transmission Date: 20120608
  Serious: Yes (Death)
  Sender: FDA-Public Use
  Company Number: CN-ROCHE-1031570

PATIENT
  Age: 78 Year
  Sex: Male

DRUGS (1)
  1. MABTHERA [Suspect]
     Indication: B-CELL LYMPHOMA
     Route: 041
     Dates: start: 20111026

REACTIONS (1)
  - RESPIRATORY FAILURE [None]
